FAERS Safety Report 16533836 (Version 1)
Quarter: 2019Q3

REPORT INFORMATION
  Report Type: Spontaneous
  Country: US (occurrence: US)
  Receive Date: 20190705
  Receipt Date: 20190705
  Transmission Date: 20191004
  Serious: No
  Sender: FDA-Public Use
  Company Number: US-009507513-1906USA010881

PATIENT
  Age: 36 Year
  Sex: Male

DRUGS (1)
  1. PROPECIA [Suspect]
     Active Substance: FINASTERIDE
     Indication: ANDROGENETIC ALOPECIA
     Dosage: 1/4 OF ONE 5MG TABLET ONCE DAILY
     Route: 048
     Dates: start: 20180126, end: 20180128

REACTIONS (4)
  - Wrong technique in product usage process [Unknown]
  - Male sexual dysfunction [Not Recovered/Not Resolved]
  - Incorrect dose administered [Unknown]
  - Depression [Not Recovered/Not Resolved]

NARRATIVE: CASE EVENT DATE: 201801
